FAERS Safety Report 7281535-3 (Version None)
Quarter: 2011Q1

REPORT INFORMATION
  Report Type: 
  Country: None (occurrence: None)
  Receive Date: 20110208
  Receipt Date: 20110202
  Transmission Date: 20110831
  Serious: Yes (Other)
  Sender: FDA-Public Use
  Company Number: US-AMGEN-USASP2011006497

PATIENT
  Age: 77 Year
  Sex: Female

DRUGS (1)
  1. ENBREL [Suspect]
     Indication: RHEUMATOID ARTHRITIS
     Dosage: 50 MG, QWK
     Dates: start: 20080201

REACTIONS (10)
  - VISION BLURRED [None]
  - HEAD INJURY [None]
  - ERYTHEMA [None]
  - DIPLOPIA [None]
  - RHEUMATOID ARTHRITIS [None]
  - DRY SKIN [None]
  - FALL [None]
  - PRURITUS [None]
  - HERPES ZOSTER [None]
  - VITREOUS FLOATERS [None]
